FAERS Safety Report 4559184-7 (Version None)
Quarter: 2005Q1

REPORT INFORMATION
  Report Type: 
  Country: None (occurrence: None)
  Receive Date: 20050121
  Receipt Date: 20050121
  Transmission Date: 20050727
  Serious: Yes (Hospitalization)
  Sender: FDA-Public Use
  Company Number: None

PATIENT
  Sex: Male
  Weight: 80 kg

DRUGS (6)
  1. NEURONTIN [Suspect]
     Indication: CONVULSION
     Dosage: 900MG   TID   ORAL
     Route: 048
     Dates: start: 20040508, end: 20041109
  2. CITALOPRAM HYDROBROMIDE [Concomitant]
  3. GABAPENTIN [Concomitant]
  4. IBUPROFEN [Concomitant]
  5. PHENOBARBITAL [Concomitant]
  6. PHENYTOIN [Concomitant]

REACTIONS (4)
  - FALL [None]
  - MOVEMENT DISORDER [None]
  - MYOCLONUS [None]
  - TREATMENT NONCOMPLIANCE [None]
